FAERS Safety Report 7148630 (Version 4)
Quarter: 2013Q4

REPORT INFORMATION
  Report Type: Spontaneous
  Country: US (occurrence: US)
  Receive Date: 20091014
  Receipt Date: 20131010
  Transmission Date: 20140711
  Serious: Yes (Hospitalization, Other)
  Sender: FDA-Public Use
  Company Number: US-ASTRAZENECA-2009SE17998

PATIENT
  Age: 50 Year
  Sex: Female
  Weight: 81.6 kg

DRUGS (9)
  1. NEXIUM [Suspect]
     Indication: GASTROOESOPHAGEAL REFLUX DISEASE
     Route: 048
     Dates: start: 200805, end: 200907
  2. NEXIUM [Suspect]
     Indication: GASTROOESOPHAGEAL REFLUX DISEASE
     Route: 048
     Dates: start: 200805, end: 200907
  3. NEXIUM [Suspect]
     Indication: GASTROOESOPHAGEAL REFLUX DISEASE
     Route: 048
  4. NEXIUM [Suspect]
     Indication: GASTROOESOPHAGEAL REFLUX DISEASE
     Route: 048
  5. NEXIUM [Suspect]
     Indication: GASTROOESOPHAGEAL REFLUX DISEASE
     Route: 048
  6. NEXIUM [Suspect]
     Indication: GASTROOESOPHAGEAL REFLUX DISEASE
     Route: 048
  7. DARVOCET [Concomitant]
  8. SKELAXIN [Concomitant]
  9. LYRICA [Concomitant]

REACTIONS (9)
  - Gastrooesophageal reflux disease [Unknown]
  - Vomiting [Unknown]
  - Malaise [Unknown]
  - Visual impairment [Unknown]
  - Pain [Unknown]
  - Diabetes mellitus [Unknown]
  - Intentional drug misuse [Unknown]
  - Drug dispensing error [Unknown]
  - Off label use [Unknown]
